FAERS Safety Report 4571566-6 (Version None)
Quarter: 2005Q1

REPORT INFORMATION
  Report Type: 
  Country: None (occurrence: None)
  Receive Date: 20050203
  Receipt Date: 20050203
  Transmission Date: 20050727
  Serious: Yes (Other)
  Sender: FDA-Public Use
  Company Number: None

PATIENT
  Sex: Female
  Weight: 50.1225 kg

DRUGS (2)
  1. ENALAPRIL 2.5 MG BID [Suspect]
     Indication: CARDIAC FAILURE CONGESTIVE
     Dosage: {2.5 MG BID BY MOUTH
  2. ENALAPRIL 2.5 MG BID [Suspect]
     Indication: HYPERTENSION
     Dosage: {2.5 MG BID BY MOUTH

REACTIONS (3)
  - PHARMACEUTICAL PRODUCT COMPLAINT [None]
  - RASH [None]
  - URTICARIA [None]
